FAERS Safety Report 12970278 (Version 1)
Quarter: 2016Q4

REPORT INFORMATION
  Report Type: Report from Study
  Country: SV (occurrence: SV)
  Receive Date: 20161123
  Receipt Date: 20161123
  Transmission Date: 20170207
  Serious: Yes (Death, Hospitalization, Other)
  Sender: FDA-Public Use
  Company Number: PHHY2016SV152141

PATIENT
  Age: 83 Year
  Sex: Female

DRUGS (4)
  1. FUROSEMIDE. [Concomitant]
     Active Substance: FUROSEMIDE
     Indication: HYPERTENSION
     Dosage: UNK
     Route: 042
  2. GLIVEC [Suspect]
     Active Substance: IMATINIB MESYLATE
     Dosage: 300 MG, QD
     Route: 065
     Dates: start: 201503
  3. GLIVEC [Suspect]
     Active Substance: IMATINIB MESYLATE
     Indication: CHRONIC MYELOID LEUKAEMIA
     Dosage: 400 MG, QD
     Route: 065
     Dates: start: 201412
  4. FUROSEMIDE. [Concomitant]
     Active Substance: FUROSEMIDE
     Dosage: UNK
     Route: 048

REACTIONS (41)
  - Protein total decreased [Unknown]
  - Chromosome analysis abnormal [Unknown]
  - Haematotoxicity [Unknown]
  - Death [Fatal]
  - Bundle branch block left [Recovering/Resolving]
  - End stage renal disease [Unknown]
  - Platelet count decreased [Unknown]
  - Prothrombin time prolonged [Unknown]
  - Myocardiac abscess [Unknown]
  - Multiple organ dysfunction syndrome [Unknown]
  - Cardiac failure congestive [Unknown]
  - International normalised ratio decreased [Unknown]
  - Alanine aminotransferase increased [Unknown]
  - Gamma-glutamyltransferase increased [Unknown]
  - Oxygen saturation decreased [Unknown]
  - Blood fibrinogen decreased [Unknown]
  - Ascites [Unknown]
  - Haemoglobin abnormal [Unknown]
  - Heart rate decreased [Unknown]
  - Blood creatinine abnormal [Unknown]
  - Renal disorder [Unknown]
  - Lymphocyte count decreased [Unknown]
  - Hypokinesia [Unknown]
  - Pleural effusion [Unknown]
  - Aspartate aminotransferase increased [Unknown]
  - Skin haemorrhage [Unknown]
  - Neutrophil count increased [Unknown]
  - Cardiomegaly [Unknown]
  - Blood bilirubin increased [Unknown]
  - Bilirubin conjugated increased [Unknown]
  - Blood bilirubin unconjugated increased [Unknown]
  - Blood iron decreased [Unknown]
  - Blood alkaline phosphatase increased [Unknown]
  - Coagulopathy [Unknown]
  - Cardiomyopathy [Recovering/Resolving]
  - Haematuria [Unknown]
  - Fluid overload [Recovering/Resolving]
  - Ecchymosis [Unknown]
  - White blood cell count decreased [Unknown]
  - Hepatic failure [Unknown]
  - Blood lactate dehydrogenase increased [Unknown]

NARRATIVE: CASE EVENT DATE: 201604
